FAERS Safety Report 4361443-8 (Version None)
Quarter: 2004Q2

REPORT INFORMATION
  Report Type: 
  Country: None (occurrence: None)
  Receive Date: 20040521
  Receipt Date: 20030515
  Transmission Date: 20050107
  Serious: Yes (Other)
  Sender: FDA-Public Use
  Company Number: US-GLAXOSMITHKLINE-A0408416A

PATIENT
  Age: 21 Year
  Sex: Male

DRUGS (1)
  1. BUPROPION HCL [Suspect]
     Route: 048
     Dates: start: 20030401, end: 20030401

REACTIONS (2)
  - DEAFNESS [None]
  - TINNITUS [None]
